FAERS Safety Report 5582940-3 (Version None)
Quarter: 2007Q4

REPORT INFORMATION
  Report Type: 
  Country: None (occurrence: None)
  Receive Date: 20071231
  Receipt Date: 20071213
  Transmission Date: 20080405
  Serious: Yes (Hospitalization)
  Sender: FDA-Public Use
  Company Number: PPC200700009

PATIENT
  Age: 61 Year
  Sex: Female
  Weight: 87 kg

DRUGS (10)
  1. VANCOMYCIN HYDROCHLORIDE [Suspect]
     Indication: AORTITIS
     Dosage: 2 GM (1 GM, 1 IN 12 HR), INTRAVENOUS
     Route: 042
     Dates: start: 20071023, end: 20071108
  2. RAMIPRIL [Concomitant]
  3. ASPIRIN [Concomitant]
  4. ATORVASTATIN CALCIUM [Concomitant]
  5. BISOPROLOL FUMARATE [Concomitant]
  6. DIVALPROEX (VALPROATE SEMISODIUM) [Concomitant]
  7. FUROSEMIDE [Concomitant]
  8. GABAPENTIN [Concomitant]
  9. PAROXETINE HCL [Concomitant]
  10. RANITIDINE [Concomitant]

REACTIONS (4)
  - DRUG LEVEL BELOW THERAPEUTIC [None]
  - PRURITUS [None]
  - RASH [None]
  - RENAL FAILURE ACUTE [None]
